FAERS Safety Report 20986558 (Version 1)
Quarter: 2022Q2

REPORT INFORMATION
  Report Type: 
  Country: US (occurrence: US)
  Receive Date: 20220621
  Receipt Date: 20220621
  Transmission Date: 20220721
  Serious: No
  Sender: FDA-Public Use
  Company Number: US-C B Fleet Co Inc-202108-US-002801

PATIENT
  Sex: Female

DRUGS (1)
  1. NIX COMPLETE MAXIMUM STRENGTH LICE ELIMINATION [Suspect]
     Active Substance: PERMETHRIN
     Indication: Lice infestation
     Dosage: DOSAGE UNKNOWN
     Route: 061

REACTIONS (1)
  - Dry skin [Not Recovered/Not Resolved]
